FAERS Safety Report 5588273-3 (Version None)
Quarter: 2008Q1

REPORT INFORMATION
  Report Type: 
  Country: None (occurrence: None)
  Receive Date: 20080111
  Receipt Date: 20080104
  Transmission Date: 20080703
  Serious: Yes (Other)
  Sender: FDA-Public Use
  Company Number: US-ASTRAZENECA-2008UW00328

PATIENT
  Age: 38 Year
  Sex: Male
  Weight: 122.5 kg

DRUGS (5)
  1. SEROQUEL [Suspect]
     Indication: BIPOLAR DISORDER
     Route: 048
     Dates: start: 20060101
  2. LITHOBID [Concomitant]
  3. SYNTHROID [Concomitant]
  4. TOPROL-XL [Concomitant]
  5. LOTREL [Concomitant]
     Dosage: 10/40 MG

REACTIONS (7)
  - AMNESIA [None]
  - DYSPHEMIA [None]
  - HIP FRACTURE [None]
  - MUSCLE SPASMS [None]
  - POST CONCUSSION SYNDROME [None]
  - SALIVARY HYPERSECRETION [None]
  - TREMOR [None]
